FAERS Safety Report 4732057-2 (Version None)
Quarter: 2005Q3

REPORT INFORMATION
  Report Type: 
  Country: None (occurrence: None)
  Receive Date: 20050725
  Receipt Date: 20040622
  Transmission Date: 20060218
  Serious: Yes (Other)
  Sender: FDA-Public Use
  Company Number: WAES 0406USA02130

PATIENT
  Age: 35 Year
  Sex: Female
  Weight: 77.1115 kg

DRUGS (1)
  1. VIOXX [Suspect]
     Dosage: 25 MG/DAILY/PO
     Route: 048
     Dates: start: 20020304, end: 20020812

REACTIONS (1)
  - PANCREATITIS ACUTE [None]
